FAERS Safety Report 19566213 (Version 2)
Quarter: 2021Q3

REPORT INFORMATION
  Report Type: Spontaneous
  Country: US (occurrence: US)
  Receive Date: 20210714
  Receipt Date: 20210721
  Transmission Date: 20211014
  Serious: Yes (Other)
  Sender: FDA-Public Use
  Company Number: US-PFIZER INC-2021816547

PATIENT
  Sex: Female

DRUGS (1)
  1. ALPRAZOLAM. [Suspect]
     Active Substance: ALPRAZOLAM
     Dosage: UNK

REACTIONS (7)
  - Urticaria [Unknown]
  - Reaction to excipient [Unknown]
  - Coeliac disease [Unknown]
  - Skin infection [Unknown]
  - Drug intolerance [Unknown]
  - Hypersensitivity [Unknown]
  - Manufacturing materials issue [Unknown]

NARRATIVE: CASE EVENT DATE: 2016
